FAERS Safety Report 25903310 (Version 1)
Quarter: 2025Q4

REPORT INFORMATION
  Report Type: Spontaneous
  Country: MD (occurrence: MD)
  Receive Date: 20251009
  Receipt Date: 20251009
  Transmission Date: 20260118
  Serious: Yes (Other)
  Sender: JOHNSON AND JOHNSON
  Company Number: MD-BAYER-2025A131888

PATIENT
  Age: 73 Year
  Sex: Female

DRUGS (1)
  1. RIVAROXABAN [Suspect]
     Active Substance: RIVAROXABAN
     Indication: Product used for unknown indication
     Route: 048

REACTIONS (6)
  - Facial paralysis [Unknown]
  - Hemiparesis [Unknown]
  - Ophthalmoplegia [Unknown]
  - Hemianopia homonymous [Unknown]
  - Aphasia [Unknown]
  - Somnolence [Unknown]
